FAERS Safety Report 13286691 (Version 1)
Quarter: 2017Q1

REPORT INFORMATION
  Report Type: Spontaneous
  Country: FR (occurrence: FR)
  Receive Date: 20170302
  Receipt Date: 20170302
  Transmission Date: 20170428
  Serious: Yes (Hospitalization)
  Sender: FDA-Public Use
  Company Number: FR-ASTRAZENECA-2017SE20642

PATIENT
  Age: 28160 Day
  Sex: Female

DRUGS (14)
  1. AMLOR [Concomitant]
     Active Substance: AMLODIPINE BESYLATE
  2. GLYCEROL\PARAFFIN [Concomitant]
     Active Substance: GLYCERIN\PARAFFIN
  3. LASILIX [Concomitant]
     Active Substance: FUROSEMIDE
  4. ATENOLOL. [Concomitant]
     Active Substance: ATENOLOL
  5. RISORDAN [Concomitant]
     Active Substance: ISOSORBIDE DINITRATE
  6. LANTUS [Concomitant]
     Active Substance: INSULIN GLARGINE
  7. KARDEGIC [Concomitant]
     Active Substance: ASPIRIN LYSINE
  8. PARACETAMOL [Concomitant]
     Active Substance: ACETAMINOPHEN
  9. VOLTARENE [Suspect]
     Active Substance: DICLOFENAC SODIUM
     Route: 048
     Dates: start: 20170118, end: 20170125
  10. NOVORAPID [Concomitant]
     Active Substance: INSULIN ASPART
  11. RAMIPRIL. [Concomitant]
     Active Substance: RAMIPRIL
  12. TAHOR [Concomitant]
     Active Substance: ATORVASTATIN CALCIUM
  13. VOLTARENE [Suspect]
     Active Substance: DICLOFENAC SODIUM
     Route: 065
     Dates: start: 20170118, end: 20170125
  14. MOPRAL [Suspect]
     Active Substance: OMEPRAZOLE SODIUM
     Route: 048
     Dates: end: 20170207

REACTIONS (4)
  - Cardiac failure [Recovering/Resolving]
  - Inappropriate antidiuretic hormone secretion [Recovered/Resolved]
  - Abdominal pain [Unknown]
  - Diarrhoea [Unknown]

NARRATIVE: CASE EVENT DATE: 20170205
